FAERS Safety Report 5815510-X (Version None)
Quarter: 2008Q3

REPORT INFORMATION
  Report Type: 
  Country: None (occurrence: None)
  Receive Date: 20080715
  Receipt Date: 20080708
  Transmission Date: 20090109
  Serious: Yes (Death, Hospitalization)
  Sender: FDA-Public Use
  Company Number: 041-21880-08070089

PATIENT
  Age: 69 Year
  Sex: Male

DRUGS (9)
  1. REVLIMID [Suspect]
     Indication: MULTIPLE MYELOMA
     Dosage: 10 MG, 1 IN 1 D, ORAL, 25 MG, 1 IN 1 D, ORAL
     Route: 048
     Dates: start: 20080318, end: 20080404
  2. REVLIMID [Suspect]
     Indication: MULTIPLE MYELOMA
     Dosage: 10 MG, 1 IN 1 D, ORAL, 25 MG, 1 IN 1 D, ORAL
     Route: 048
     Dates: start: 20080517, end: 20080606
  3. REVLIMID [Suspect]
     Indication: MULTIPLE MYELOMA
     Dosage: 10 MG, 1 IN 1 D, ORAL, 25 MG, 1 IN 1 D, ORAL
     Route: 048
     Dates: start: 20080617, end: 20080630
  4. DEXAMETHASONE TAB [Concomitant]
  5. EPO (EPOETIN NOS) [Concomitant]
  6. COTRMOXAZOLE (BACTRIM) (TABLETS) [Concomitant]
  7. FAMOTIDINE [Concomitant]
  8. ALLOPURINOL [Concomitant]
  9. ENOXAPARIN SODIUM [Concomitant]

REACTIONS (5)
  - HYPOTENSION [None]
  - MULTI-ORGAN FAILURE [None]
  - PNEUMONIA [None]
  - PSEUDOMONAS INFECTION [None]
  - SEPTIC SHOCK [None]
